FAERS Safety Report 6595206-X (Version None)
Quarter: 2010Q1

REPORT INFORMATION
  Report Type: 
  Country: None (occurrence: None)
  Receive Date: 20100212
  Receipt Date: 20100203
  Transmission Date: 20100710
  Serious: Yes (Other)
  Sender: FDA-Public Use
  Company Number: 1022556-2010-00011

PATIENT
  Age: 40 Year
  Sex: Male
  Weight: 111.1313 kg

DRUGS (1)
  1. ACT TOTAL CARE ICY CLEAN MOUTHWASH, 0.02% NAF [Suspect]
     Indication: DENTAL DISORDER PROPHYLAXIS
     Dosage: 10 MG X 1, MOUTHRINSE
     Dates: start: 20091229

REACTIONS (1)
  - DRUG HYPERSENSITIVITY [None]
